FAERS Safety Report 4630301-3 (Version None)
Quarter: 2005Q2

REPORT INFORMATION
  Report Type: 
  Country: None (occurrence: None)
  Receive Date: 20050408
  Receipt Date: 20050223
  Transmission Date: 20051028
  Serious: Yes (Hospitalization)
  Sender: FDA-Public Use
  Company Number: 200510621JP

PATIENT
  Age: 81 Year
  Sex: Female
  Weight: 40 kg

DRUGS (17)
  1. KETEK [Suspect]
     Indication: ATRIAL FIBRILLATION
     Route: 048
     Dates: start: 20041221, end: 20041225
  2. KETEK [Suspect]
     Indication: NASOPHARYNGITIS
     Route: 048
     Dates: start: 20041221, end: 20041225
  3. WARFARIN [Suspect]
     Indication: ATRIAL FIBRILLATION
     Route: 048
  4. WARFARIN [Suspect]
     Indication: MITRAL VALVE REPLACEMENT
     Route: 048
  5. DIGOSIN [Concomitant]
     Indication: ATRIAL FIBRILLATION
     Route: 048
  6. ALDACTONE-A [Concomitant]
     Route: 048
     Dates: end: 20041230
  7. KELNAC [Concomitant]
     Route: 048
     Dates: end: 20041230
  8. COMELIAN [Concomitant]
     Route: 048
  9. FLUITRAN [Concomitant]
     Route: 048
     Dates: end: 20041231
  10. RENIVACE [Concomitant]
     Route: 048
  11. MUCODYNE [Concomitant]
     Indication: NASOPHARYNGITIS
     Route: 048
     Dates: start: 20041221, end: 20041225
  12. BISOLVON [Concomitant]
     Indication: NASOPHARYNGITIS
     Route: 048
     Dates: start: 20041221, end: 20041225
  13. TRANSAMIN [Concomitant]
     Indication: NASOPHARYNGITIS
     Route: 048
     Dates: start: 20041221, end: 20041225
  14. PL GRAN. [Concomitant]
     Indication: NASOPHARYNGITIS
     Route: 048
     Dates: start: 20041221, end: 20041225
  15. OMEPRAL [Concomitant]
     Indication: UPPER GASTROINTESTINAL HAEMORRHAGE
     Dosage: DOSE: 2V
     Route: 041
     Dates: start: 20041230, end: 20050103
  16. TAKEPRON [Concomitant]
     Indication: UPPER GASTROINTESTINAL HAEMORRHAGE
     Route: 048
     Dates: end: 20050112
  17. MUCOSTA [Concomitant]
     Route: 048
     Dates: start: 20041231

REACTIONS (7)
  - ANAEMIA [None]
  - CARDIOACTIVE DRUG LEVEL DECREASED [None]
  - GASTRIC ULCER HAEMORRHAGE [None]
  - INTERNATIONAL NORMALISED RATIO INCREASED [None]
  - PLATELET COUNT DECREASED [None]
  - PROTHROMBIN TIME PROLONGED [None]
  - WHITE BLOOD CELL COUNT DECREASED [None]
